FAERS Safety Report 4514140-X (Version None)
Quarter: 2004Q4

REPORT INFORMATION
  Report Type: 
  Country: None (occurrence: None)
  Receive Date: 20041124
  Receipt Date: 20041115
  Transmission Date: 20050328
  Serious: Yes (Life-Threatening)
  Sender: FDA-Public Use
  Company Number: 2004CG02276

PATIENT
  Age: 25 Year
  Sex: Female
  Weight: 51 kg

DRUGS (2)
  1. ZOMIG [Suspect]
     Indication: MIGRAINE
     Dosage: 2.5 MG QD PO
     Route: 048
     Dates: start: 20040921, end: 20040927
  2. MONEVA [Suspect]
     Indication: ORAL CONTRACEPTION
     Dates: start: 20040415

REACTIONS (1)
  - PULMONARY EMBOLISM [None]
